FAERS Safety Report 9452865 (Version 1)
Quarter: 2013Q3

REPORT INFORMATION
  Report Type: Spontaneous
  Country: JM (occurrence: JM)
  Receive Date: 20130812
  Receipt Date: 20130812
  Transmission Date: 20140515
  Serious: Yes (Death, Hospitalization)
  Sender: FDA-Public Use
  Company Number: JM-RANBAXY-2013R1-72125

PATIENT
  Age: 22 Year
  Sex: Female

DRUGS (1)
  1. CLINDAMYCIN [Suspect]
     Indication: TOOTH EXTRACTION
     Dosage: UNK
     Route: 065

REACTIONS (7)
  - Clostridium difficile infection [Unknown]
  - Cardio-respiratory distress [Unknown]
  - Hypotension [Unknown]
  - Pulmonary oedema [Unknown]
  - Leukopenia [Unknown]
  - Thrombocytopenia [Unknown]
  - Death [Fatal]
